FAERS Safety Report 9206818 (Version 2)
Quarter: 2013Q2

REPORT INFORMATION
  Report Type: Spontaneous
  Country: US (occurrence: US)
  Receive Date: 20130403
  Receipt Date: 20130406
  Transmission Date: 20140414
  Serious: No
  Sender: FDA-Public Use
  Company Number: US-009507513-1304USA001435

PATIENT
  Age: 88 Year
  Sex: Female
  Weight: 51.7 kg

DRUGS (1)
  1. MIRALAX [Suspect]
     Indication: PRODUCT USED FOR UNKNOWN INDICATION
     Dosage: 1 DF, ONCE
     Route: 048
     Dates: start: 20130206

REACTIONS (2)
  - Pain [Not Recovered/Not Resolved]
  - Drug effect decreased [Unknown]
